FAERS Safety Report 15094490 (Version 1)
Quarter: 2018Q2

REPORT INFORMATION
  Report Type: Spontaneous
  Country: US (occurrence: US)
  Receive Date: 20180630
  Receipt Date: 20180630
  Transmission Date: 20180711
  Serious: Yes (Hospitalization, Other)
  Sender: FDA-Public Use
  Company Number: US-JNJFOC-20180625453

PATIENT
  Age: 69 Year
  Sex: Female
  Weight: 86.18 kg

DRUGS (3)
  1. DARZALEX [Suspect]
     Active Substance: DARATUMUMAB
     Indication: PLASMA CELL MYELOMA
     Route: 042
     Dates: start: 201803
  2. BENADRYL [Suspect]
     Active Substance: DIPHENHYDRAMINE HYDROCHLORIDE
     Indication: PREMEDICATION
     Route: 042
  3. POMALYST [Concomitant]
     Active Substance: POMALIDOMIDE
     Route: 048

REACTIONS (9)
  - Feeling abnormal [Unknown]
  - Chills [Unknown]
  - Hypertension [Unknown]
  - Palpitations [Unknown]
  - Carotid artery occlusion [Unknown]
  - Atrial fibrillation [Unknown]
  - Feeling hot [Unknown]
  - Dizziness [Unknown]
  - Heart rate increased [Unknown]

NARRATIVE: CASE EVENT DATE: 201805
